FAERS Safety Report 5890963-X (Version None)
Quarter: 2008Q3

REPORT INFORMATION
  Report Type: 
  Country: None (occurrence: None)
  Receive Date: 20080922
  Receipt Date: 20080912
  Transmission Date: 20090109
  Serious: Yes (Death)
  Sender: FDA-Public Use
  Company Number: A0748444A

PATIENT
  Age: 55 Year
  Sex: Male
  Weight: 104.5 kg

DRUGS (1)
  1. AVANDIA [Suspect]
     Dosage: 8MG PER DAY
     Route: 048
     Dates: start: 20020601, end: 20070602

REACTIONS (1)
  - MYOCARDIAL INFARCTION [None]
